FAERS Safety Report 5748054-4 (Version None)
Quarter: 2008Q2

REPORT INFORMATION
  Report Type: 
  Country: None (occurrence: None)
  Receive Date: 20080523
  Receipt Date: 20080513
  Transmission Date: 20081010
  Serious: Yes (Other)
  Sender: FDA-Public Use
  Company Number: DE-ELI_LILLY_AND_COMPANY-DE200805002345

PATIENT
  Sex: Female

DRUGS (5)
  1. CYMBALTA [Suspect]
     Indication: PAIN
     Dosage: 30 MG, EACH EVENING
     Route: 048
     Dates: start: 20071204, end: 20071227
  2. DOXEPIN HCL [Concomitant]
     Indication: SLEEP DISORDER
     Dosage: 6 D/F, EACH EVENING
     Route: 048
     Dates: start: 20070619, end: 20071204
  3. LYRICA [Concomitant]
     Indication: PAIN IN EXTREMITY
     Dosage: 75 MG, 2/D
     Route: 048
     Dates: start: 20070628, end: 20071227
  4. NAPROXEN [Concomitant]
     Dosage: UNK, 2/D
     Route: 048
     Dates: start: 20070601, end: 20070701
  5. KATADOLON [Concomitant]
     Indication: PAIN IN EXTREMITY
     Dosage: UNK, EACH EVENING
     Route: 048
     Dates: start: 20071001, end: 20071227

REACTIONS (3)
  - GASTRITIS [None]
  - GASTROOESOPHAGEAL REFLUX DISEASE [None]
  - HEPATITIS ACUTE [None]
